FAERS Safety Report 8367017-6 (Version None)
Quarter: 2012Q2

REPORT INFORMATION
  Report Type: 
  Country: None (occurrence: None)
  Receive Date: 20120515
  Receipt Date: 20120515
  Transmission Date: 20120825
  Serious: No
  Sender: FDA-Public Use
  Company Number: None

PATIENT
  Age: 52 Year
  Sex: Male

DRUGS (13)
  1. DARBEPOETIN ALFA [Concomitant]
  2. PREDNISONE [Concomitant]
  3. ZOCOR [Suspect]
     Dates: start: 20100406, end: 20100707
  4. ALLOPURINOL [Suspect]
     Dates: start: 20100601, end: 20100801
  5. CLONIDINE [Concomitant]
  6. INSULIN [Concomitant]
  7. METOLAZONE [Concomitant]
  8. POTASSIUM CHLORIDE [Concomitant]
  9. PANTOPRAZOLE [Concomitant]
  10. ERGOCALCIFEROL [Concomitant]
  11. ENOXAPARIN [Concomitant]
  12. LABETALOL HCL [Concomitant]
  13. ONDANSETRON [Concomitant]

REACTIONS (9)
  - DRUG-INDUCED LIVER INJURY [None]
  - CARDIAC ARREST [None]
  - CHROMATURIA [None]
  - GASTROINTESTINAL HAEMORRHAGE [None]
  - NAUSEA [None]
  - DECREASED APPETITE [None]
  - JAUNDICE [None]
  - CHOLESTASIS [None]
  - FOCAL SEGMENTAL GLOMERULOSCLEROSIS [None]
